FAERS Safety Report 7493227-6 (Version None)
Quarter: 2011Q2

REPORT INFORMATION
  Report Type: 
  Country: None (occurrence: None)
  Receive Date: 20110519
  Receipt Date: 20110519
  Transmission Date: 20111010
  Serious: Yes (Hospitalization)
  Sender: FDA-Public Use
  Company Number: None

PATIENT
  Age: 74 Year
  Sex: Female
  Weight: 48.3 kg

DRUGS (3)
  1. PROLIA [Suspect]
     Indication: PROPHYLAXIS
     Dosage: ^1 DOSE^ X 1 IV
     Route: 042
  2. PROLIA [Suspect]
     Indication: FRACTURE
     Dosage: ^1 DOSE^ X 1 IV
     Route: 042
  3. PROLIA [Suspect]
     Indication: OSTEOPOROSIS
     Dosage: ^1 DOSE^ X 1 IV
     Route: 042

REACTIONS (6)
  - ABASIA [None]
  - HYPOAESTHESIA ORAL [None]
  - ASTHENIA [None]
  - BLOOD CALCIUM DECREASED [None]
  - SOMNOLENCE [None]
  - FATIGUE [None]
